FAERS Safety Report 7928513-6 (Version None)
Quarter: 2011Q4

REPORT INFORMATION
  Report Type: 
  Country: None (occurrence: None)
  Receive Date: 20111118
  Receipt Date: 20111108
  Transmission Date: 20120403
  Serious: Yes (Death)
  Sender: FDA-Public Use
  Company Number: MX-ELI_LILLY_AND_COMPANY-MX201111002920

PATIENT
  Age: 60 Year
  Sex: Male

DRUGS (1)
  1. SYMBYAX [Suspect]
     Indication: DEPRESSION
     Dosage: UNK, UNKNOWN

REACTIONS (1)
  - COMPLETED SUICIDE [None]
